FAERS Safety Report 25740236 (Version 1)
Quarter: 2025Q3

REPORT INFORMATION
  Report Type: Spontaneous
  Country: US (occurrence: None)
  Receive Date: 20250828
  Receipt Date: 20250828
  Transmission Date: 20251020
  Serious: Yes (Other)
  Sender: FDA-CTU
  Company Number: None

PATIENT
  Age: 38 Year
  Sex: Female
  Weight: 81.45 kg

DRUGS (1)
  1. NYVEPRIA [Suspect]
     Active Substance: PEGFILGRASTIM-APGF
     Indication: Anaemia
     Route: 058
     Dates: start: 20250718, end: 20250827

REACTIONS (2)
  - Hypersensitivity [None]
  - Electrocardiogram ST segment elevation [None]

NARRATIVE: CASE EVENT DATE: 20250808
